FAERS Safety Report 10220118 (Version 3)
Quarter: 2014Q2

REPORT INFORMATION
  Report Type: Spontaneous
  Country: US (occurrence: US)
  Receive Date: 20140605
  Receipt Date: 20140627
  Transmission Date: 20141212
  Serious: Yes (Other)
  Sender: FDA-Public Use
  Company Number: US-009507513-1406USA001172

PATIENT
  Sex: Female

DRUGS (1)
  1. DESOGEN [Suspect]
     Dosage: UNK
     Route: 048

REACTIONS (1)
  - Abortion spontaneous [Unknown]
